FAERS Safety Report 19275526 (Version 1)
Quarter: 2021Q2

REPORT INFORMATION
  Report Type: Spontaneous
  Country: US (occurrence: US)
  Receive Date: 20210519
  Receipt Date: 20210519
  Transmission Date: 20210717
  Serious: Yes (Death, Hospitalization, Other)
  Sender: FDA-Public Use
  Company Number: US-AMGEN-USASP2021073308

PATIENT

DRUGS (7)
  1. TACROLIMUS. [Concomitant]
     Active Substance: TACROLIMUS
     Dosage: UNK
     Route: 065
  2. PREDNISONE. [Concomitant]
     Active Substance: PREDNISONE
     Dosage: UNK
  3. CYCLOSPORINE. [Concomitant]
     Active Substance: CYCLOSPORINE
     Dosage: UNK
  4. BORTEZOMIB. [Suspect]
     Active Substance: BORTEZOMIB
     Indication: PRODUCT USED FOR UNKNOWN INDICATION
     Dosage: UNK
     Route: 065
  5. CARFILZOMIB [Suspect]
     Active Substance: CARFILZOMIB
     Indication: PRODUCT USED FOR UNKNOWN INDICATION
     Dosage: UNK
     Route: 065
  6. METHYLPREDNISOLONE. [Concomitant]
     Active Substance: METHYLPREDNISOLONE
     Dosage: 10 MILLIGRAM/KILOGRAM, QD FOR 3 DAYS
  7. RITUXIMAB. [Suspect]
     Active Substance: RITUXIMAB
     Indication: PRODUCT USED FOR UNKNOWN INDICATION
     Dosage: UNK
     Route: 065

REACTIONS (26)
  - Acute respiratory distress syndrome [Unknown]
  - Multiple organ dysfunction syndrome [Fatal]
  - Arrhythmia [Unknown]
  - Brain stem syndrome [Unknown]
  - Pneumonia klebsiella [Unknown]
  - Acute kidney injury [Unknown]
  - Candida infection [Unknown]
  - Seizure [Unknown]
  - Pneumonia staphylococcal [Unknown]
  - Hallucination [Unknown]
  - Enterococcal infection [Unknown]
  - Respiratory failure [Fatal]
  - Pneumonia pseudomonal [Unknown]
  - Embolism venous [Unknown]
  - Klebsiella test positive [Unknown]
  - Morganella infection [Unknown]
  - Cytomegalovirus infection [Unknown]
  - Cardiac arrest [Fatal]
  - Transaminases increased [Unknown]
  - Staphylococcus test positive [Unknown]
  - Off label use [Unknown]
  - Shock [Fatal]
  - Mental status changes [Unknown]
  - Migraine [Unknown]
  - COVID-19 [Unknown]
  - Delirium [Unknown]

NARRATIVE: CASE EVENT DATE: 2020
